FAERS Safety Report 6858017-3 (Version None)
Quarter: 2010Q3

REPORT INFORMATION
  Report Type: 
  Country: None (occurrence: None)
  Receive Date: 20100719
  Receipt Date: 20100719
  Transmission Date: 20110219
  Serious: No
  Sender: FDA-Public Use
  Company Number: None

PATIENT

DRUGS (1)
  1. SIMVASTATIN [Suspect]
     Dosage: 40 MG 1 DAY
     Dates: start: 20100601

REACTIONS (2)
  - CARDIAC FLUTTER [None]
  - PRODUCT SUBSTITUTION ISSUE [None]
